FAERS Safety Report 9699198 (Version 2)
Quarter: 2013Q4

REPORT INFORMATION
  Report Type: Spontaneous
  Country: US (occurrence: US)
  Receive Date: 20131120
  Receipt Date: 20131120
  Transmission Date: 20140711
  Serious: No
  Sender: FDA-Public Use
  Company Number: US-GILEAD-2008-0015004

PATIENT
  Age: 73 Year
  Sex: Female
  Weight: 47.63 kg

DRUGS (10)
  1. LETAIRIS [Suspect]
     Indication: PULMONARY ARTERIAL HYPERTENSION
     Route: 048
     Dates: start: 20071025
  2. MONOPRIL [Concomitant]
     Indication: ESSENTIAL HYPERTENSION
     Route: 048
  3. LASIX [Concomitant]
     Indication: OEDEMA
     Route: 048
  4. AVALIDE [Concomitant]
     Indication: ESSENTIAL HYPERTENSION
     Route: 048
  5. LIPITOR [Concomitant]
     Indication: HYPERCHOLESTEROLAEMIA
     Route: 048
  6. NOVOLIN 70/30 [Concomitant]
     Indication: TYPE 1 DIABETES MELLITUS
     Route: 058
  7. GLUCOPHAGE [Concomitant]
     Indication: TYPE 1 DIABETES MELLITUS
     Route: 048
  8. GLYBURIDE [Concomitant]
     Indication: TYPE 1 DIABETES MELLITUS
     Route: 048
  9. SYNTHROID [Concomitant]
     Indication: HYPOTHYROIDISM
     Route: 048
  10. PRILOSEC [Concomitant]
     Indication: GASTROOESOPHAGEAL REFLUX DISEASE
     Route: 048

REACTIONS (1)
  - Pain [Not Recovered/Not Resolved]
